FAERS Safety Report 5460649-4 (Version None)
Quarter: 2007Q3

REPORT INFORMATION
  Report Type: 
  Country: None (occurrence: None)
  Receive Date: 20070918
  Receipt Date: 20070907
  Transmission Date: 20080115
  Serious: Yes (Other)
  Sender: FDA-Public Use
  Company Number: TUK2007A00094

PATIENT
  Age: 56 Year
  Sex: Female

DRUGS (8)
  1. ACTOS [Suspect]
     Indication: TYPE 2 DIABETES MELLITUS
     Dosage: 15 MG
     Route: 048
     Dates: start: 20070813, end: 20070817
  2. CLOPIDOGREL [Concomitant]
  3. HUMALOG [Concomitant]
  4. METFORMIN HCL [Concomitant]
  5. NEBIVOLOL (NEBIVOLOL) [Concomitant]
  6. RAMIPRIL [Concomitant]
  7. SIMVASTATIN [Concomitant]
  8. LEVOTHYROXINE SODIUM [Concomitant]

REACTIONS (2)
  - DYSPEPSIA [None]
  - HEADACHE [None]
